FAERS Safety Report 5136903-2 (Version None)
Quarter: 2006Q4

REPORT INFORMATION
  Report Type: 
  Country: None (occurrence: None)
  Receive Date: 20061023
  Receipt Date: 20061012
  Transmission Date: 20070319
  Serious: Yes (Life-Threatening, Hospitalization)
  Sender: FDA-Public Use
  Company Number: 2006125986

PATIENT
  Age: 18 Year
  Sex: Male

DRUGS (1)
  1. FRAGMIN [Suspect]
     Indication: THROMBOSIS PROPHYLAXIS
     Dosage: 5000 I.U. (5000 I.U., QD), SUBCUTANEOUS
     Route: 058
     Dates: start: 20061003

REACTIONS (2)
  - DRUG INEFFECTIVE [None]
  - THROMBOSIS [None]
